FAERS Safety Report 8052486-1 (Version None)
Quarter: 2012Q1

REPORT INFORMATION
  Report Type: 
  Country: None (occurrence: None)
  Receive Date: 20120118
  Receipt Date: 20120111
  Transmission Date: 20120608
  Serious: Yes (Other)
  Sender: FDA-Public Use
  Company Number: US-PFIZER INC-2012009371

PATIENT
  Sex: Female
  Weight: 66.667 kg

DRUGS (2)
  1. LIPITOR [Suspect]
     Indication: BLOOD TRIGLYCERIDES INCREASED
  2. LIPITOR [Suspect]
     Indication: LOW DENSITY LIPOPROTEIN INCREASED
     Dosage: 40 MG, DAILY
     Route: 048
     Dates: end: 20111101

REACTIONS (1)
  - HYPERTENSION [None]
